FAERS Safety Report 7139400-8 (Version None)
Quarter: 2010Q4

REPORT INFORMATION
  Report Type: 
  Country: None (occurrence: None)
  Receive Date: 20101206
  Receipt Date: 20101123
  Transmission Date: 20110411
  Serious: Yes (Other)
  Sender: FDA-Public Use
  Company Number: DE-GENENTECH-310336

PATIENT
  Age: 30 Year

DRUGS (2)
  1. RITUXIMAB [Suspect]
     Indication: BURKITT'S LYMPHOMA
     Dosage: 25 MG, 2/WEEK
     Route: 037
  2. ARA-C [Concomitant]
     Indication: BURKITT'S LYMPHOMA
     Dosage: 50 MG, 3/WEEK
     Route: 037

REACTIONS (3)
  - BACK PAIN [None]
  - PARAPARESIS [None]
  - TUMOUR LYSIS SYNDROME [None]
